FAERS Safety Report 12369914 (Version 2)
Quarter: 2016Q2

REPORT INFORMATION
  Report Type: Spontaneous
  Country: US (occurrence: US)
  Receive Date: 20160516
  Receipt Date: 20160629
  Transmission Date: 20160815
  Serious: No
  Sender: FDA-Public Use
  Company Number: US-ASTRAZENECA-2016SE38026

PATIENT
  Age: 22487 Day
  Sex: Male
  Weight: 63.5 kg

DRUGS (2)
  1. PULMICORT FLEXHALER [Suspect]
     Active Substance: BUDESONIDE
     Indication: ASTHMA
     Dosage: 180MCG 2 PUFFS IN THE MORNING EVERY DAY
     Route: 055
     Dates: start: 20160314
  2. PULMICORT FLEXHALER [Suspect]
     Active Substance: BUDESONIDE
     Indication: ASTHMA
     Dosage: 180MCG 2 PUFFS IN THE MORNING EVERY DAY
     Route: 055
     Dates: start: 2015

REACTIONS (3)
  - Feeling abnormal [Recovered/Resolved]
  - Off label use [Unknown]
  - Product quality issue [Unknown]

NARRATIVE: CASE EVENT DATE: 20160314
